FAERS Safety Report 10039144 (Version 5)
Quarter: 2014Q4

REPORT INFORMATION
  Report Type: Report from Study
  Country: JP (occurrence: JP)
  Receive Date: 20140326
  Receipt Date: 20141008
  Transmission Date: 20150528
  Serious: Yes (Other)
  Sender: FDA-Public Use
  Company Number: PHHY2014JP033957

PATIENT
  Age: 66 Year
  Sex: Female

DRUGS (53)
  1. CLOZARIL [Suspect]
     Active Substance: CLOZAPINE
     Dosage: 300 MG, UNK
     Route: 048
     Dates: start: 20121128, end: 20130220
  2. CLOZARIL [Suspect]
     Active Substance: CLOZAPINE
     Dosage: 450 MG, UNK
     Route: 048
     Dates: start: 20131204, end: 20140121
  3. MAGLAX [Concomitant]
     Active Substance: MAGNESIUM OXIDE
     Dosage: 1500 MG, UNK
     Route: 048
  4. AKIRIDEN [Concomitant]
     Active Substance: BIPERIDEN
     Dosage: 3 MG, UNK
     Route: 048
     Dates: start: 20120607
  5. AKIRIDEN [Concomitant]
     Active Substance: BIPERIDEN
     Dosage: 1 MG, UNK
     Route: 048
     Dates: end: 20120711
  6. LIMAS [Concomitant]
     Active Substance: LITHIUM CARBONATE
     Dosage: 200 MG, UNK
     Route: 048
     Dates: start: 20120607
  7. LIMAS [Concomitant]
     Active Substance: LITHIUM CARBONATE
     Dosage: 400 MG, UNK
     Route: 048
     Dates: end: 20121204
  8. CLOZARIL [Suspect]
     Active Substance: CLOZAPINE
     Dosage: 75 MG, UNK
     Route: 048
     Dates: start: 20120613, end: 20120616
  9. CLOZARIL [Suspect]
     Active Substance: CLOZAPINE
     Dosage: 100 MG, UNK
     Route: 048
     Dates: start: 20120617, end: 20120619
  10. CLOZARIL [Suspect]
     Active Substance: CLOZAPINE
     Dosage: 250 MG, UNK
     Route: 048
     Dates: start: 20120718, end: 20120724
  11. CLOZARIL [Suspect]
     Active Substance: CLOZAPINE
     Dosage: 350 MG, UNK
     Route: 048
     Dates: start: 20120815, end: 20120821
  12. CLOZARIL [Suspect]
     Active Substance: CLOZAPINE
     Dosage: 325 MG, UNK
     Route: 048
     Dates: start: 20130221, end: 20130224
  13. CLOZARIL [Suspect]
     Active Substance: CLOZAPINE
     Dosage: 450 MG, UNK
     Route: 048
     Dates: start: 20130515, end: 20130528
  14. RISPERIDONE. [Concomitant]
     Active Substance: RISPERIDONE
     Dosage: 3 MG, UNK
     Route: 048
     Dates: start: 20120607, end: 20120611
  15. LOSIZOPILON [Concomitant]
     Dosage: 100 MG, UNK
     Route: 048
  16. RIVOTRIL [Concomitant]
     Active Substance: CLONAZEPAM
     Dosage: 1.5 MG, UNK
     Route: 048
     Dates: start: 201206
  17. PANTETHINE [Concomitant]
     Active Substance: PANTETHINE
     Indication: PROPHYLAXIS
     Dosage: 900 MG, UNK
     Route: 048
     Dates: start: 20130319, end: 20130325
  18. CLOZARIL [Suspect]
     Active Substance: CLOZAPINE
     Dosage: 50 MG, UNK
     Route: 048
     Dates: start: 20120610, end: 20120612
  19. CLOZARIL [Suspect]
     Active Substance: CLOZAPINE
     Dosage: 350 MG, UNK
     Route: 048
     Dates: start: 20130225, end: 20130227
  20. CLOZARIL [Suspect]
     Active Substance: CLOZAPINE
     Dosage: 375 MG, UNK
     Route: 048
     Dates: start: 20130228, end: 20130306
  21. CLOZARIL [Suspect]
     Active Substance: CLOZAPINE
     Dosage: 425 MG, UNK
     Route: 048
     Dates: start: 20130501, end: 20130514
  22. MAGLAX [Concomitant]
     Active Substance: MAGNESIUM OXIDE
     Dosage: 2000 MG, UNK
     Route: 048
     Dates: start: 20120607
  23. MAGLAX [Concomitant]
     Active Substance: MAGNESIUM OXIDE
     Dosage: 1500 MG, UNK
     Route: 048
  24. RIVOTRIL [Concomitant]
     Active Substance: CLONAZEPAM
     Dosage: 0.5 MG, UNK
     Route: 048
     Dates: end: 20120905
  25. PANTOSIN [Concomitant]
     Active Substance: PANTETHINE
     Indication: PROPHYLAXIS
     Dosage: 300 MG, UNK
     Route: 048
     Dates: start: 20130326
  26. CLOZARIL [Suspect]
     Active Substance: CLOZAPINE
     Dosage: 200 MG, UNK
     Route: 048
     Dates: start: 20120704, end: 20120717
  27. CLOZARIL [Suspect]
     Active Substance: CLOZAPINE
     Dosage: 300 MG, UNK
     Route: 048
     Dates: start: 20120725, end: 20120814
  28. CLOZARIL [Suspect]
     Active Substance: CLOZAPINE
     Dosage: 400 MG, UNK
     Route: 048
     Dates: start: 20120822, end: 20121127
  29. CLOZARIL [Suspect]
     Active Substance: CLOZAPINE
     Dosage: 475 MG, UNK
     Route: 048
     Dates: start: 20130529, end: 20130611
  30. SENNOSIDE [Concomitant]
     Active Substance: SENNOSIDES
     Dosage: 24 MG, UNK
     Route: 048
     Dates: start: 201206
  31. LIMAS [Concomitant]
     Active Substance: LITHIUM CARBONATE
     Dosage: 600 MG, UNK
     Route: 048
  32. GASCON [Concomitant]
     Active Substance: DIMETHICONE
     Dosage: 120 MG, UNK
  33. AKIRIDEN [Concomitant]
     Active Substance: BIPERIDEN
     Dosage: 2 MG, UNK
     Route: 048
  34. GASMOTIN [Concomitant]
     Active Substance: MOSAPRIDE CITRATE
     Indication: PROPHYLAXIS
     Dosage: 15 MG, UNK
     Route: 048
     Dates: start: 20130319, end: 20130415
  35. GASCON [Concomitant]
     Active Substance: DIMETHICONE
     Indication: PROPHYLAXIS
     Dosage: 150 MG, UNK
     Dates: start: 20130319
  36. GASCON [Concomitant]
     Active Substance: DIMETHICONE
     Dosage: 30 MG, UNK
     Dates: end: 20130528
  37. CLOZARIL [Suspect]
     Active Substance: CLOZAPINE
     Dosage: 500 MG, UNK
     Route: 048
     Dates: start: 20131008, end: 20131203
  38. SENNOSIDE [Concomitant]
     Active Substance: SENNOSIDES
     Dosage: 12 MG, UNK
     Route: 048
     Dates: end: 20121210
  39. RIVOTRIL [Concomitant]
     Active Substance: CLONAZEPAM
     Dosage: 1 MG, UNK
     Route: 048
  40. LIMAS [Concomitant]
     Active Substance: LITHIUM CARBONATE
     Dosage: 400 MG, UNK
     Route: 048
  41. CLOZARIL [Suspect]
     Active Substance: CLOZAPINE
     Dosage: 150 MG, UNK
     Route: 048
     Dates: start: 20120624, end: 20120630
  42. CLOZARIL [Suspect]
     Active Substance: CLOZAPINE
     Dosage: 175 MG, UNK
     Route: 048
     Dates: start: 20120701, end: 20120703
  43. CLOZARIL [Suspect]
     Active Substance: CLOZAPINE
     Dosage: 400 MG, UNK
     Route: 048
     Dates: start: 20130307, end: 20130430
  44. CLOZARIL [Suspect]
     Active Substance: CLOZAPINE
     Dosage: 500 MG, UNK
     Route: 048
     Dates: start: 20140122
  45. LOSIZOPILON [Concomitant]
     Dosage: 50 MG, UNK
     Route: 048
     Dates: end: 20120623
  46. QUAZEPAM. [Concomitant]
     Active Substance: QUAZEPAM
     Indication: SCHIZOPHRENIA, PARANOID TYPE
     Dosage: 15 MG, UNK
     Route: 048
     Dates: start: 20120607, end: 201207
  47. MAGMITT [Concomitant]
     Active Substance: MAGNESIUM OXIDE
     Dosage: 990 MG, UNK
     Route: 048
     Dates: start: 20121212, end: 20130407
  48. CLOZARIL [Suspect]
     Active Substance: CLOZAPINE
     Indication: SCHIZOPHRENIA, PARANOID TYPE
     Dosage: 12.5 MG, UNK
     Route: 048
     Dates: start: 20120607, end: 20120607
  49. CLOZARIL [Suspect]
     Active Substance: CLOZAPINE
     Dosage: 25 MG, UNK
     Route: 048
     Dates: start: 20120608, end: 20120609
  50. CLOZARIL [Suspect]
     Active Substance: CLOZAPINE
     Dosage: 125 MG, UNK
     Route: 048
     Dates: start: 20120620, end: 20120623
  51. LOSIZOPILON [Concomitant]
     Dosage: 300 MG, UNK
     Route: 048
     Dates: start: 201206
  52. LOSIZOPILON [Concomitant]
     Dosage: 200 MG, UNK
     Route: 048
  53. MAGLAX [Concomitant]
     Active Substance: MAGNESIUM OXIDE
     Dosage: 2000 MG, UNK
     Route: 048

REACTIONS (10)
  - Ileus [Recovering/Resolving]
  - Red blood cell count decreased [Unknown]
  - Haematocrit decreased [Unknown]
  - Abdominal pain [Unknown]
  - Lymphocyte count decreased [Unknown]
  - Haemoglobin decreased [Unknown]
  - Monocyte count increased [Unknown]
  - Basophil count increased [Unknown]
  - Decreased appetite [Recovering/Resolving]
  - Blood pressure decreased [Unknown]

NARRATIVE: CASE EVENT DATE: 20120926
